FAERS Safety Report 8204448-9 (Version None)
Quarter: 2012Q1

REPORT INFORMATION
  Report Type: 
  Country: None (occurrence: None)
  Receive Date: 20120313
  Receipt Date: 20120228
  Transmission Date: 20120608
  Serious: Yes (Other)
  Sender: FDA-Public Use
  Company Number: IT-MYLANLABS-2012S1004560

PATIENT
  Age: 78 Year
  Sex: Male

DRUGS (1)
  1. ALPRAZOLAM [Suspect]
     Indication: TREMOR
     Route: 048
     Dates: start: 20120209, end: 20120213

REACTIONS (6)
  - SOPOR [None]
  - DYSARTHRIA [None]
  - GAIT DISTURBANCE [None]
  - TREMOR [None]
  - CONFUSIONAL STATE [None]
  - HYPERTONIA [None]
